FAERS Safety Report 14392412 (Version 5)
Quarter: 2018Q2

REPORT INFORMATION
  Report Type: Spontaneous
  Country: PL (occurrence: PL)
  Receive Date: 20180116
  Receipt Date: 20180514
  Transmission Date: 20180711
  Serious: Yes (Other)
  Sender: FDA-Public Use
  Company Number: PHHY2018PL005683

PATIENT
  Age: 70 Year
  Sex: Female

DRUGS (14)
  1. AMOXICILLIN. [Concomitant]
     Active Substance: AMOXICILLIN
     Indication: PNEUMONIA
     Dosage: UNK
     Route: 065
  2. CARBIDOPA LEVODOPA [Suspect]
     Active Substance: CARBIDOPA\LEVODOPA
     Dosage: PROLONGED RELEASE LEVODOPA/CARBIDOPA 200/50 MG 1X/DAY AT 10:00 PM
     Route: 065
  3. ROPINIROLE HYDROCHLORIDE. [Suspect]
     Active Substance: ROPINIROLE HYDROCHLORIDE
     Dosage: 6 MG, QD
     Route: 065
  4. RASAGILINE TARTRATE [Suspect]
     Active Substance: RASAGILINE TARTRATE
     Indication: PARKINSON^S DISEASE
     Dosage: 1 MG, QD (IN MORNING)
     Route: 065
  5. AMITRIPTYLINE HYDROCHLORIDE. [Suspect]
     Active Substance: AMITRIPTYLINE HYDROCHLORIDE
     Indication: SLEEP DISORDER
  6. AMITRIPTYLINE HYDROCHLORIDE. [Suspect]
     Active Substance: AMITRIPTYLINE HYDROCHLORIDE
     Indication: DEPRESSION
     Dosage: 25 MG, QD
     Route: 065
  7. OXYBUTYNIN HYDROCHLORIDE [Suspect]
     Active Substance: OXYBUTYNIN CHLORIDE
     Indication: URINARY INCONTINENCE
     Dosage: 15 MG, QD
     Route: 065
  8. BIPERIDEN [Suspect]
     Active Substance: BIPERIDEN
     Indication: PARKINSON^S DISEASE
     Dosage: 4 MG, QD
     Route: 065
  9. RIVASTIGMINE. [Suspect]
     Active Substance: RIVASTIGMINE
     Indication: PRODUCT USED FOR UNKNOWN INDICATION
     Dosage: UNK
     Route: 065
  10. AMANTADINE. [Suspect]
     Active Substance: AMANTADINE HYDROCHLORIDE
     Indication: PARKINSON^S DISEASE
     Dosage: 200 MG, QD (MORNING AND MIDDAY)
     Route: 065
  11. CARBIDOPA LEVODOPA [Suspect]
     Active Substance: CARBIDOPA\LEVODOPA
     Indication: PARKINSON^S DISEASE
     Dosage: 100/25 MG 4 TIMES A DAY AT 7:00 AM. 11:00 AM, 3:00 PM AND 7:00 PM
     Route: 065
  12. ROPINIROLE HYDROCHLORIDE. [Suspect]
     Active Substance: ROPINIROLE HYDROCHLORIDE
     Indication: PARKINSON^S DISEASE
     Dosage: 8 MG, QD (IN MORNING)
     Route: 065
  13. CLOZAPINE. [Suspect]
     Active Substance: CLOZAPINE
     Indication: PRODUCT USED FOR UNKNOWN INDICATION
     Dosage: UNK
     Route: 065
  14. AMANTADINE. [Suspect]
     Active Substance: AMANTADINE HYDROCHLORIDE
     Dosage: 200 MG, QD
     Route: 065

REACTIONS (12)
  - Parkinson^s disease [Unknown]
  - Pneumonia [Unknown]
  - Anxiety [Unknown]
  - Psychotic symptom [Unknown]
  - Hallucinations, mixed [Recovered/Resolved]
  - C-reactive protein increased [Unknown]
  - Hallucination, visual [Recovered/Resolved]
  - Neutrophil count increased [Unknown]
  - White blood cell count increased [Unknown]
  - Cerebral atrophy [Unknown]
  - Drug interaction [Unknown]
  - Mental impairment [Unknown]
